FAERS Safety Report 9229158 (Version 1)
Quarter: 2013Q2

REPORT INFORMATION
  Report Type: Spontaneous
  Country: US (occurrence: US)
  Receive Date: 20130412
  Receipt Date: 20130412
  Transmission Date: 20140414
  Serious: No
  Sender: FDA-Public Use
  Company Number: US-009507513-1304USA005438

PATIENT
  Sex: Female
  Weight: 90.7 kg

DRUGS (5)
  1. NEXPLANON [Suspect]
     Indication: CONTRACEPTION
     Dosage: 3 YEARS
     Route: 059
     Dates: start: 20120707
  2. STRATTERA [Concomitant]
     Indication: BLOOD ANTIDIURETIC HORMONE
  3. STRATTERA [Concomitant]
     Indication: ATTENTION DEFICIT/HYPERACTIVITY DISORDER
  4. TOPIRAMATE [Concomitant]
     Indication: MIGRAINE
  5. CITALOPRAM [Concomitant]
     Indication: DEPRESSION

REACTIONS (2)
  - Headache [Unknown]
  - Depression [Unknown]
